FAERS Safety Report 7401307 (Version 5)
Quarter: 2012Q4

REPORT INFORMATION
  Report Type: 
  Country: US (occurrence: US)
  Receive Date: 20100527
  Receipt Date: 20121001
  Transmission Date: 20130627
  Serious: Yes (Hospitalization)
  Sender: FDA-Public Use
  Company Number: US-BAYER-201023275NA

PATIENT
  Age: 16 Year
  Sex: Female
  Weight: 54.55 kg

DRUGS (12)
  1. OCELLA [Suspect]
     Indication: CONTRACEPTION
     Dosage: 1 TABLET/DAY
     Route: 048
     Dates: start: 200909, end: 200910
  2. IBUPROFEN [Concomitant]
     Route: 065
  3. TEGRETOL [Concomitant]
     Route: 065
  4. ALBUTEROL [Concomitant]
     Route: 055
  5. SYNTHROID [Concomitant]
     Indication: HYPOTHYROIDISM
     Route: 065
     Dates: start: 2007
  6. LORAZEPAM [Concomitant]
     Indication: ANXIETY
     Route: 065
     Dates: start: 2007
  7. WELLBUTRIN [Concomitant]
     Indication: BIPOLAR DISORDER
  8. WELLBUTRIN [Concomitant]
     Indication: DEPRESSION
  9. LITHIUM [Concomitant]
     Indication: BIPOLAR DISORDER
  10. AMBIEN [Concomitant]
     Indication: INSOMNIA
     Dosage: UNK
     Dates: start: 2007
  11. OXYCODONE/APAP [Concomitant]
  12. BETAMETHASONE W/CLOTRIMAZOLE [Concomitant]
     Dosage: Apply to affected [as written]
     Route: 061

REACTIONS (4)
  - Pulmonary embolism [Unknown]
  - Injury [Unknown]
  - Pain [Unknown]
  - Dyspnoea [Unknown]
